FAERS Safety Report 17509435 (Version 1)
Quarter: 2020Q1

REPORT INFORMATION
  Report Type: Spontaneous
  Country: US (occurrence: US)
  Receive Date: 20200306
  Receipt Date: 20200306
  Transmission Date: 20200409
  Serious: No
  Sender: FDA-Public Use
  Company Number: US-SA-2020SA054242

PATIENT
  Age: 91 Year
  Sex: Female

DRUGS (1)
  1. PRALUENT [Suspect]
     Active Substance: ALIROCUMAB
     Indication: HYPERCHOLESTEROLAEMIA
     Dosage: 75 MG, QOW
     Route: 058

REACTIONS (6)
  - Toothache [Unknown]
  - Throat tightness [Unknown]
  - Sluggishness [Unknown]
  - Pain [Unknown]
  - Neck pain [Unknown]
  - Ear pain [Unknown]

NARRATIVE: CASE EVENT DATE: 20200225
